FAERS Safety Report 23959703 (Version 2)
Quarter: 2024Q3

REPORT INFORMATION
  Report Type: Report from Study
  Country: US (occurrence: US)
  Receive Date: 20240611
  Receipt Date: 20240812
  Transmission Date: 20241017
  Serious: Yes (Death, Hospitalization, Other)
  Sender: TAKEDA
  Company Number: US-TAKEDA-2024TUS046444

PATIENT
  Age: 47 Year
  Sex: Male

DRUGS (2)
  1. FRUQUINTINIB [Suspect]
     Active Substance: FRUQUINTINIB
     Indication: Colon cancer
     Dosage: 5 MILLIGRAM
     Route: 048
     Dates: start: 20240427
  2. FRUQUINTINIB [Suspect]
     Active Substance: FRUQUINTINIB
     Dosage: 5 MILLIGRAM
     Route: 048

REACTIONS (6)
  - Death [Fatal]
  - Stoma site haemorrhage [Recovering/Resolving]
  - Platelet count abnormal [Recovering/Resolving]
  - Somnolence [Not Recovered/Not Resolved]
  - Nausea [Unknown]
  - Dysphonia [Unknown]

NARRATIVE: CASE EVENT DATE: 20240723
